FAERS Safety Report 5519859-X (Version None)
Quarter: 2007Q4

REPORT INFORMATION
  Report Type: 
  Country: None (occurrence: None)
  Receive Date: 20071116
  Receipt Date: 20070926
  Transmission Date: 20080405
  Serious: No
  Sender: FDA-Public Use
  Company Number: A0684391A

PATIENT
  Age: 45 Year
  Sex: Male

DRUGS (5)
  1. COREG CR [Suspect]
     Indication: TACHYCARDIA
     Dosage: 10MG PER DAY
     Route: 048
  2. SINGULAIR [Concomitant]
  3. ATIVAN [Concomitant]
  4. DYAZIDE [Concomitant]
  5. ALLEGRA [Concomitant]

REACTIONS (1)
  - OEDEMA [None]
